FAERS Safety Report 6205899-4 (Version None)
Quarter: 2009Q2

REPORT INFORMATION
  Report Type: 
  Country: None (occurrence: None)
  Receive Date: 20090527
  Receipt Date: 20090514
  Transmission Date: 20091009
  Serious: No
  Sender: FDA-Public Use
  Company Number: US-ABBOTT-09P-163-0573164-00

PATIENT
  Sex: Female
  Weight: 89.438 kg

DRUGS (7)
  1. SIMCOR [Suspect]
     Indication: BLOOD CHOLESTEROL ABNORMAL
     Dosage: 500MG/20MG
     Dates: start: 20090422, end: 20090506
  2. SIMCOR [Suspect]
     Dosage: 1000MG/20MG
     Dates: start: 20090506
  3. IBUPROFEN [Concomitant]
     Indication: DRUG USE FOR UNKNOWN INDICATION
     Dosage: 200MG X3 TABLETS
     Route: 048
     Dates: start: 20090423, end: 20090423
  4. IBUPROFEN [Concomitant]
     Dosage: 200MG X 2 TABLETS
     Route: 048
     Dates: start: 20090424, end: 20090424
  5. IBUPROFEN [Concomitant]
     Dosage: 200MG X 1 TABLET
     Route: 048
     Dates: start: 20090513
  6. UNKNOWN BLOOD PRESSURE PILL [Concomitant]
     Indication: BLOOD PRESSURE
     Route: 048
  7. METFORMIN HCL [Concomitant]
     Indication: DRUG USE FOR UNKNOWN INDICATION
     Dosage: MORNING AND EVENING DAILY
     Route: 048

REACTIONS (3)
  - FLUSHING [None]
  - PARAESTHESIA [None]
  - SKIN BURNING SENSATION [None]
